FAERS Safety Report 6271274-X (Version None)
Quarter: 2009Q3

REPORT INFORMATION
  Report Type: 
  Country: None (occurrence: None)
  Receive Date: 20090716
  Receipt Date: 20090716
  Transmission Date: 20100115
  Serious: No
  Sender: FDA-Public Use
  Company Number: None

PATIENT
  Age: 57 Year
  Sex: Female
  Weight: 56.6996 kg

DRUGS (2)
  1. CIPRO [Suspect]
     Indication: SINUSITIS
     Dosage: 500 MG B.I.D.
     Dates: start: 20090602, end: 20090609
  2. CIPRO [Suspect]
     Indication: TOOTH EXTRACTION
     Dosage: 500 MG B.I.D.
     Dates: start: 20090602, end: 20090609

REACTIONS (2)
  - DRUG INEFFECTIVE [None]
  - HEADACHE [None]
